FAERS Safety Report 9020159 (Version 1)
Quarter: 2013Q1

REPORT INFORMATION
  Report Type: Spontaneous
  Country: US (occurrence: US)
  Receive Date: 20130119
  Receipt Date: 20130119
  Transmission Date: 20140127
  Serious: No
  Sender: FDA-Public Use
  Company Number: US-ALLERGAN-1210421US

PATIENT
  Age: 64 Year
  Sex: Female

DRUGS (5)
  1. BOTOX COSMETIC [Suspect]
     Indication: SKIN WRINKLING
     Dosage: UNK, SINGLE
     Route: 030
  2. BOTOX COSMETIC [Suspect]
     Indication: SKIN WRINKLING
     Dosage: UNK, SINGLE
     Route: 030
  3. BOTOX COSMETIC [Suspect]
     Indication: SKIN WRINKLING
  4. TRAVATAN [Concomitant]
     Indication: GLAUCOMA
     Dosage: 2 GTT, QHS
     Route: 047
  5. COSOPT [Concomitant]
     Indication: GLAUCOMA
     Dosage: 2 GTT, BID
     Route: 047

REACTIONS (2)
  - Asthenopia [Recovered/Resolved]
  - Diplopia [Recovered/Resolved]
